FAERS Safety Report 9060735 (Version 1)
Quarter: 2013Q1

REPORT INFORMATION
  Report Type: Spontaneous
  Country: FR (occurrence: FR)
  Receive Date: 20130204
  Receipt Date: 20130204
  Transmission Date: 20140127
  Serious: Yes (Life-Threatening, Hospitalization, Other)
  Sender: FDA-Public Use
  Company Number: FR-ABBOTT-13P-056-1044340-00

PATIENT
  Age: 53 None
  Sex: Female

DRUGS (1)
  1. OESCLIM [Suspect]
     Indication: MENOPAUSE
     Dosage: 1 PATCH DAILY
     Route: 062
     Dates: end: 20130106

REACTIONS (7)
  - Acute coronary syndrome [Recovered/Resolved]
  - Cardiogenic shock [Recovered/Resolved]
  - Cardio-respiratory arrest [Recovered/Resolved]
  - Atrial fibrillation [Recovered/Resolved]
  - Hypothermia [Recovered/Resolved]
  - Heart injury [Unknown]
  - Coronary artery stenosis [Unknown]
